FAERS Safety Report 23242001 (Version 1)
Quarter: 2023Q4

REPORT INFORMATION
  Report Type: Spontaneous
  Country: ES (occurrence: ES)
  Receive Date: 20231129
  Receipt Date: 20231129
  Transmission Date: 20240110
  Serious: Yes (Other)
  Sender: FDA-Public Use
  Company Number: ES-PFIZER INC-202300356489

PATIENT
  Age: 5 Decade
  Sex: Female

DRUGS (3)
  1. FLUOROURACIL [Suspect]
     Active Substance: FLUOROURACIL
     Indication: Product used for unknown indication
     Dosage: 6 (CYCLICAL)
     Route: 065
     Dates: start: 200812, end: 200904
  2. EPIRUBICIN HYDROCHLORIDE [Suspect]
     Active Substance: EPIRUBICIN HYDROCHLORIDE
     Indication: Product used for unknown indication
     Dosage: 6 (CYCLICAL)
     Route: 065
     Dates: start: 200812, end: 200904
  3. CYCLOPHOSPHAMIDE [Suspect]
     Active Substance: CYCLOPHOSPHAMIDE
     Indication: Product used for unknown indication
     Dosage: 6 (CYCLICAL)
     Route: 065

REACTIONS (4)
  - Neutropenia [Unknown]
  - Asthenia [Unknown]
  - Mucosal inflammation [Unknown]
  - Alopecia [Unknown]

NARRATIVE: CASE EVENT DATE: 20230401
